FAERS Safety Report 5878272-6 (Version None)
Quarter: 2008Q3

REPORT INFORMATION
  Report Type: 
  Country: None (occurrence: None)
  Receive Date: 20080911
  Receipt Date: 20080903
  Transmission Date: 20090109
  Serious: Yes (Other)
  Sender: FDA-Public Use
  Company Number: JP-AVENTIS-200611931JP

PATIENT
  Age: 78 Year
  Sex: Male

DRUGS (7)
  1. LASIX [Suspect]
     Route: 048
     Dates: end: 20050620
  2. LASIX [Suspect]
     Route: 048
     Dates: start: 20050803, end: 20050817
  3. ARTIST [Suspect]
  4. MICARDIS [Concomitant]
     Route: 048
  5. ADALAT CC [Concomitant]
     Route: 048
  6. WARFARIN SODIUM [Concomitant]
     Route: 048
  7. LUPRAC [Concomitant]
     Route: 048

REACTIONS (1)
  - PEMPHIGOID [None]
